FAERS Safety Report 8759535 (Version 1)
Quarter: 2012Q4

REPORT INFORMATION
  Report Type: 
  Country: US (occurrence: US)
  Receive Date: 20120829
  Receipt Date: 20120829
  Transmission Date: 20130627
  Serious: No
  Sender: FDA-Public Use
  Company Number: US-BAYER-2012-086650

PATIENT
  Sex: Female

DRUGS (1)
  1. CLIMARA [Suspect]
     Indication: HYSTERECTOMY
     Dosage: 0.05 mg/24hr, CONT
     Route: 023

REACTIONS (2)
  - Rash [None]
  - Weight loss poor [None]
